FAERS Safety Report 9090864 (Version 7)
Quarter: 2016Q3

REPORT INFORMATION
  Report Type: Report from Study
  Country: JP (occurrence: JP)
  Receive Date: 20130131
  Receipt Date: 20160907
  Transmission Date: 20161109
  Serious: Yes (Hospitalization, Disabling, Other)
  Sender: FDA-Public Use
  Company Number: PHHY2012JP104429

PATIENT
  Age: 54 Year
  Sex: Male
  Weight: 56 kg

DRUGS (10)
  1. LASIX [Concomitant]
     Active Substance: FUROSEMIDE
     Dosage: UNK
     Route: 048
  2. AFINITOR [Suspect]
     Active Substance: EVEROLIMUS
     Dosage: 10 MG, QD
     Route: 048
     Dates: start: 20120623
  3. JUVELA [Concomitant]
     Active Substance: .ALPHA.-TOCOPHEROL\RETINOL
     Dosage: 300 MG, DAILY
     Route: 048
  4. METHYCOBAL [Concomitant]
     Active Substance: METHYLCOBALAMIN
     Dosage: 1500 UG, UNK
     Route: 048
  5. LIVACT [Concomitant]
     Active Substance: AMINO ACIDS
     Dosage: UNK
     Route: 048
     Dates: start: 20130627
  6. SANDOSTATIN LAR DEPOT [Concomitant]
     Active Substance: OCTREOTIDE ACETATE
     Indication: PANCREATIC NEUROENDOCRINE TUMOUR
     Dosage: 20 MG, UNK
     Route: 030
     Dates: start: 20111031
  7. AFINITOR [Suspect]
     Active Substance: EVEROLIMUS
     Indication: PANCREATIC NEUROENDOCRINE TUMOUR
     Dosage: 10 MG, QD
     Route: 048
     Dates: start: 20120119, end: 20120608
  8. THYRADIN [Concomitant]
     Active Substance: LEVOTHYROXINE
     Dosage: 150 UG, UNK
     Route: 048
  9. LASIX [Concomitant]
     Active Substance: FUROSEMIDE
     Dosage: 20 MG, UNK
     Route: 048
     Dates: start: 20130404
  10. FLIVAS [Concomitant]
     Active Substance: NAFTOPIDIL

REACTIONS (15)
  - Impaired insulin secretion [Recovering/Resolving]
  - Glycosylated haemoglobin increased [Recovering/Resolving]
  - Muscular weakness [Recovering/Resolving]
  - Pyrexia [Recovered/Resolved]
  - Weight decreased [Unknown]
  - Ataxia [Recovering/Resolving]
  - C-reactive protein increased [Unknown]
  - Hypoaesthesia [Unknown]
  - Hypoalbuminaemia [Not Recovered/Not Resolved]
  - Malaise [Unknown]
  - Hyperglycaemia [Recovered/Resolved]
  - Oedema peripheral [Recovering/Resolving]
  - Lumbar spinal stenosis [Recovering/Resolving]
  - Diabetic nephropathy [Unknown]
  - Diarrhoea [Unknown]

NARRATIVE: CASE EVENT DATE: 20120608
